FAERS Safety Report 10756379 (Version 2)
Quarter: 2015Q3

REPORT INFORMATION
  Report Type: Report from Study
  Country: US (occurrence: US)
  Receive Date: 20150202
  Receipt Date: 20150709
  Transmission Date: 20151125
  Serious: Yes (Life-Threatening, Hospitalization, Other)
  Sender: FDA-Public Use
  Company Number: US-ALEXION PHARMACEUTICALS INC.-A201500334

PATIENT
  Age: 67 Year
  Sex: Female

DRUGS (8)
  1. APRESOLINE HYDROCHLORIDE [Concomitant]
     Active Substance: HYDRALAZINE HYDROCHLORIDE
     Indication: HYPERTENSION
     Dosage: 5 MG, TID
     Route: 048
  2. ECULIZUMAB [Suspect]
     Active Substance: ECULIZUMAB
     Dosage: 1200 MG, Q2W
     Route: 042
     Dates: start: 20131213, end: 20140218
  3. COREG [Concomitant]
     Active Substance: CARVEDILOL
     Indication: HYPERTENSION
     Dosage: 25 MG, BID
     Route: 048
  4. CEFTIN [Concomitant]
     Active Substance: CEFUROXIME AXETIL
     Indication: URINARY TRACT INFECTION
     Dosage: UNKNOWN
     Route: 042
  5. ECULIZUMAB [Suspect]
     Active Substance: ECULIZUMAB
     Indication: HAEMOLYTIC URAEMIC SYNDROME
     Dosage: 900 MG, UNK
     Route: 042
     Dates: start: 20131102, end: 20131122
  6. NORVASC [Concomitant]
     Active Substance: AMLODIPINE BESYLATE
     Indication: HYPERTENSION
     Dosage: 10 MG, QD
     Route: 048
  7. CEFTIN [Concomitant]
     Active Substance: CEFUROXIME AXETIL
     Dosage: UNKNOWN
     Route: 048
  8. LEVAQUIN [Concomitant]
     Active Substance: LEVOFLOXACIN
     Indication: URINARY TRACT INFECTION
     Dosage: UNKNOWN
     Route: 048

REACTIONS (1)
  - Cardiac failure acute [Recovered/Resolved with Sequelae]

NARRATIVE: CASE EVENT DATE: 20140613
